FAERS Safety Report 16910989 (Version 1)
Quarter: 2019Q4

REPORT INFORMATION
  Report Type: Spontaneous
  Country: FR (occurrence: FR)
  Receive Date: 20191012
  Receipt Date: 20191012
  Transmission Date: 20200122
  Serious: Yes (Hospitalization)
  Sender: FDA-Public Use
  Company Number: FR-ACCORD-156973

PATIENT
  Age: 64 Year
  Sex: Male
  Weight: 50 kg

DRUGS (2)
  1. ALIMTA [Suspect]
     Active Substance: PEMETREXED DISODIUM
     Indication: CERVIX CARCINOMA
     Dosage: 725MG/CURE
     Route: 041
     Dates: start: 20190128, end: 20190312
  2. CARBOPLATIN ACCORD [Suspect]
     Active Substance: CARBOPLATIN
     Indication: CERVIX CARCINOMA
     Dosage: C1J1
     Route: 041
     Dates: start: 20190128, end: 20190502

REACTIONS (2)
  - Off label use [Unknown]
  - Renal failure [Not Recovered/Not Resolved]

NARRATIVE: CASE EVENT DATE: 201904
